FAERS Safety Report 14821917 (Version 1)
Quarter: 2018Q2

REPORT INFORMATION
  Report Type: Spontaneous
  Country: CA (occurrence: CA)
  Receive Date: 20180427
  Receipt Date: 20180427
  Transmission Date: 20180711
  Serious: Yes (Other)
  Sender: FDA-Public Use
  Company Number: CA-ASTRAZENECA-2018SE54469

PATIENT
  Age: 66 Year
  Sex: Male

DRUGS (1)
  1. KOMBOGLYZE [Suspect]
     Active Substance: METFORMIN HYDROCHLORIDE\SAXAGLIPTIN
     Indication: TYPE 2 DIABETES MELLITUS
     Dosage: 2.5/1000MG, 1 TABLET TWICE A DAY
     Route: 048

REACTIONS (2)
  - Inability to afford medication [Unknown]
  - Lung neoplasm malignant [Unknown]
